FAERS Safety Report 19770353 (Version 2)
Quarter: 2021Q3

REPORT INFORMATION
  Report Type: Report from Study
  Country: US (occurrence: US)
  Receive Date: 20210831
  Receipt Date: 20210831
  Transmission Date: 20211014
  Serious: Yes (Hospitalization)
  Sender: FDA-Public Use
  Company Number: US-EXELIXIS-CABO-21043747

PATIENT
  Sex: Female
  Weight: 71.6 kg

DRUGS (3)
  1. OTEZLA [Concomitant]
     Active Substance: APREMILAST
  2. CABOMETYX [Suspect]
     Active Substance: CABOZANTINIB S-MALATE
     Indication: RENAL CANCER
     Dosage: 40 MG, QD
     Route: 048
     Dates: start: 20201029
  3. INLYTA [Concomitant]
     Active Substance: AXITINIB

REACTIONS (2)
  - Infection [Unknown]
  - Drug intolerance [Unknown]
